FAERS Safety Report 21976486 (Version 2)
Quarter: 2023Q1

REPORT INFORMATION
  Report Type: Other
  Country: US (occurrence: None)
  Receive Date: 20230210
  Receipt Date: 20230216
  Transmission Date: 20230418
  Serious: Yes (Hospitalization, Other)
  Sender: FDA-Public Use
  Company Number: US-ROCHE-3275612

PATIENT
  Age: 62 Year
  Sex: Male
  Weight: 86.260 kg

DRUGS (13)
  1. OCREVUS [Suspect]
     Active Substance: OCRELIZUMAB
     Indication: Relapsing multiple sclerosis
     Route: 042
  2. MODAFINIL [Concomitant]
     Active Substance: MODAFINIL
  3. GABAPENTIN [Concomitant]
     Active Substance: GABAPENTIN
     Route: 048
  4. AUBAGIO [Concomitant]
     Active Substance: TERIFLUNOMIDE
  5. VENTOLIN HFA [Concomitant]
     Active Substance: ALBUTEROL SULFATE
  6. LIORESAL [Concomitant]
     Active Substance: BACLOFEN
  7. VITAMIN D3 [Concomitant]
     Active Substance: CHOLECALCIFEROL
  8. VITAMIN B12 [Concomitant]
     Active Substance: CYANOCOBALAMIN
  9. AMPYRA [Concomitant]
     Active Substance: DALFAMPRIDINE
  10. LEXAPRO [Concomitant]
     Active Substance: ESCITALOPRAM OXALATE
  11. NEURONTIN [Concomitant]
     Active Substance: GABAPENTIN
  12. GLUCOSAMINE HYDROCHLORIDE\SODIUM CHONDROITIN SULFATE [Concomitant]
     Active Substance: GLUCOSAMINE HYDROCHLORIDE\SODIUM CHONDROITIN SULFATE
  13. PROVIGIL [Concomitant]
     Active Substance: MODAFINIL

REACTIONS (5)
  - Respiratory disorder [Not Recovered/Not Resolved]
  - Sepsis [Recovered/Resolved]
  - Clostridium difficile infection [Unknown]
  - Pneumonia [Unknown]
  - Immunosuppression [Not Recovered/Not Resolved]

NARRATIVE: CASE EVENT DATE: 20221001
